FAERS Safety Report 17169716 (Version 1)
Quarter: 2019Q4

REPORT INFORMATION
  Report Type: Spontaneous
  Country: US (occurrence: US)
  Receive Date: 20191218
  Receipt Date: 20191218
  Transmission Date: 20200122
  Serious: No
  Sender: FDA-Public Use
  Company Number: US-BAYER-2019-221198

PATIENT

DRUGS (2)
  1. TYLENOL [Concomitant]
     Active Substance: ACETAMINOPHEN
     Indication: PYREXIA
     Dosage: 1000 MG, QID
  2. ALEVE [Suspect]
     Active Substance: NAPROXEN SODIUM
     Indication: PYREXIA
     Dosage: UNK

REACTIONS (2)
  - Product packaging issue [None]
  - Dyspepsia [Unknown]

NARRATIVE: CASE EVENT DATE: 20191205
